FAERS Safety Report 5975592-1 (Version None)
Quarter: 2008Q4

REPORT INFORMATION
  Report Type: 
  Country: None (occurrence: None)
  Receive Date: 20081128
  Receipt Date: 20081106
  Transmission Date: 20090506
  Serious: Yes (Hospitalization)
  Sender: FDA-Public Use
  Company Number: WAES 0810USA04823

PATIENT
  Age: 72 Year
  Sex: Male
  Weight: 75.7507 kg

DRUGS (4)
  1. ZOCOR [Suspect]
     Indication: ACUTE CORONARY SYNDROME
     Dosage: 40 MG/DAILY/PO
     Route: 048
     Dates: start: 20070925, end: 20081019
  2. TAB PLACEBO [Suspect]
     Indication: ACUTE CORONARY SYNDROME
     Dosage: PO
     Route: 048
     Dates: start: 20070925, end: 20081019
  3. PLAVIX [Concomitant]
  4. THERAPY UNSPECIFIED [Concomitant]

REACTIONS (3)
  - GAIT DISTURBANCE [None]
  - HYDROCEPHALUS [None]
  - SYNCOPE [None]
